FAERS Safety Report 9924773 (Version 1)
Quarter: 2014Q1

REPORT INFORMATION
  Report Type: Spontaneous
  Country: US (occurrence: None)
  Receive Date: 20140221
  Receipt Date: 20140221
  Transmission Date: 20141002
  Serious: Yes (Other)
  Sender: FDA-Public Use
  Company Number: 2014SA016941

PATIENT
  Age: 22 Year
  Sex: Female

DRUGS (1)
  1. ICY HOT MEDICATED NO MESS APPLICATOR [Suspect]
     Indication: PAIN IN EXTREMITY
     Dosage: ; UNKNOWN ; UNKNOWN
     Dates: start: 20140206

REACTIONS (4)
  - Arthralgia [None]
  - Erythema [None]
  - Blister [None]
  - Thermal burn [None]
